FAERS Safety Report 7955828-8 (Version None)
Quarter: 2011Q4

REPORT INFORMATION
  Report Type: 
  Country: None (occurrence: None)
  Receive Date: 20111205
  Receipt Date: 20111130
  Transmission Date: 20120403
  Serious: Yes (Hospitalization)
  Sender: FDA-Public Use
  Company Number: US-BIOGENIDEC-2011BI044543

PATIENT
  Sex: Female

DRUGS (2)
  1. AVONEX [Suspect]
     Indication: MULTIPLE SCLEROSIS
     Route: 030
     Dates: start: 20080701, end: 20110901
  2. AVONEX [Suspect]
     Route: 030
     Dates: start: 20050206, end: 20070401

REACTIONS (4)
  - CHOLECYSTECTOMY [None]
  - ILEUS [None]
  - GENERAL SYMPTOM [None]
  - APHAGIA [None]
